FAERS Safety Report 7057386-1 (Version None)
Quarter: 2010Q4

REPORT INFORMATION
  Report Type: 
  Country: None (occurrence: None)
  Receive Date: 20101022
  Receipt Date: 20101018
  Transmission Date: 20110411
  Serious: Yes (Life-Threatening, Hospitalization)
  Sender: FDA-Public Use
  Company Number: JP-JNJFOC-20101005864

PATIENT
  Sex: Male

DRUGS (1)
  1. DUROTEP MT [Suspect]
     Indication: PRODUCT USED FOR UNKNOWN INDICATION
     Route: 062

REACTIONS (6)
  - DEPRESSED LEVEL OF CONSCIOUSNESS [None]
  - DISCOMFORT [None]
  - DIZZINESS [None]
  - INTENTIONAL DRUG MISUSE [None]
  - NAUSEA [None]
  - VOMITING [None]
